FAERS Safety Report 24307038 (Version 1)
Quarter: 2024Q3

REPORT INFORMATION
  Report Type: Spontaneous
  Country: KR (occurrence: KR)
  Receive Date: 20240911
  Receipt Date: 20240911
  Transmission Date: 20241016
  Serious: Yes (Other)
  Sender: KOWA PHARM
  Company Number: KR-KOWA-24JP002236AA

PATIENT
  Age: 47 Year
  Sex: Male
  Weight: 75 kg

DRUGS (1)
  1. EZETIMIBE\PITAVASTATIN CALCIUM [Suspect]
     Active Substance: EZETIMIBE\PITAVASTATIN CALCIUM
     Indication: Dyslipidaemia
     Dosage: UNK, UNK
     Route: 048
     Dates: start: 20230720

REACTIONS (3)
  - Appendicitis [Unknown]
  - Diabetes mellitus [Unknown]
  - Weight increased [Unknown]

NARRATIVE: CASE EVENT DATE: 20230101
